FAERS Safety Report 6011759-4 (Version None)
Quarter: 2008Q4

REPORT INFORMATION
  Report Type: 
  Country: None (occurrence: None)
  Receive Date: 20081218
  Receipt Date: 20071223
  Transmission Date: 20090506
  Serious: No
  Sender: FDA-Public Use
  Company Number: US-ABBOTT-07P-163-0431446-00

PATIENT
  Sex: Male
  Weight: 100.9 kg

DRUGS (4)
  1. MERIDIA [Suspect]
     Indication: WEIGHT CONTROL
     Route: 048
     Dates: start: 20071213
  2. LISINOPRIL [Concomitant]
     Indication: HYPERTENSION
     Route: 048
  3. UNKNOWN DIURETIC [Concomitant]
     Indication: HYPERTENSION
     Route: 048
  4. SIMVASTATIN [Concomitant]
     Indication: BLOOD CHOLESTEROL INCREASED
     Route: 048

REACTIONS (3)
  - BLOOD PRESSURE DECREASED [None]
  - INSOMNIA [None]
  - MOOD ALTERED [None]
